FAERS Safety Report 18278389 (Version 1)
Quarter: 2020Q3

REPORT INFORMATION
  Report Type: Spontaneous
  Country: US (occurrence: US)
  Receive Date: 20200917
  Receipt Date: 20200917
  Transmission Date: 20201103
  Serious: No
  Sender: FDA-Public Use
  Company Number: US-PERRIGO-20US010074

PATIENT
  Sex: Female

DRUGS (4)
  1. GUAIFENESIN?DEXTROMETHORPHAN HYDROBROMIDE [Suspect]
     Active Substance: DEXTROMETHORPHAN HYDROBROMIDE\GUAIFENESIN
     Indication: COUGH
     Dosage: 1 TABLET, QD
     Route: 048
     Dates: start: 20200708, end: 20200709
  2. METOPROLOL. [Concomitant]
     Active Substance: METOPROLOL
     Indication: HEART RATE IRREGULAR
     Dosage: UNK
  3. GUAIFENESIN?DEXTROMETHORPHAN HYDROBROMIDE [Suspect]
     Active Substance: DEXTROMETHORPHAN HYDROBROMIDE\GUAIFENESIN
     Indication: INCREASED UPPER AIRWAY SECRETION
  4. VENLAFAXINE [Concomitant]
     Active Substance: VENLAFAXINE HYDROCHLORIDE
     Indication: DEPRESSION
     Dosage: UNK

REACTIONS (2)
  - Fatigue [Recovering/Resolving]
  - Heart rate irregular [Recovering/Resolving]

NARRATIVE: CASE EVENT DATE: 20200709
